FAERS Safety Report 11812848 (Version 1)
Quarter: 2015Q4

REPORT INFORMATION
  Report Type: Report from Study
  Country: FI (occurrence: FI)
  Receive Date: 20151209
  Receipt Date: 20151209
  Transmission Date: 20160305
  Serious: Yes (Hospitalization)
  Sender: FDA-Public Use
  Company Number: FI-ROCHE-ITM201408IM006625

PATIENT
  Age: 76 Year
  Sex: Female
  Weight: 73 kg

DRUGS (25)
  1. PIRFENIDONE [Suspect]
     Active Substance: PIRFENIDONE
     Indication: IDIOPATHIC PULMONARY FIBROSIS
     Dosage: 2403 MG
     Route: 048
     Dates: start: 20140715
  2. PIRFENIDONE [Suspect]
     Active Substance: PIRFENIDONE
     Dosage: 2403 MG
     Route: 048
     Dates: start: 20140826, end: 20141207
  3. KALCIPOS-D [Concomitant]
     Active Substance: CALCIUM CARBONATE\CHOLECALCIFEROL
     Indication: OSTEOPOROSIS PROPHYLAXIS
     Route: 065
     Dates: end: 20141206
  4. OXYGEN. [Concomitant]
     Active Substance: OXYGEN
     Indication: IDIOPATHIC PULMONARY FIBROSIS
     Dosage: UNIT DOSE: 3 LITERS/MINUTE
     Route: 065
     Dates: start: 201406, end: 20141212
  5. PREDNISOLON [Concomitant]
     Active Substance: PREDNISOLONE
     Indication: IDIOPATHIC PULMONARY FIBROSIS
     Dosage: 5 MG
     Route: 065
     Dates: start: 20130404, end: 20140802
  6. PSYLLIUM [Concomitant]
     Active Substance: PLANTAGO SEED
     Indication: CONSTIPATION
     Route: 065
     Dates: end: 20141206
  7. ORUDIS [Concomitant]
     Active Substance: KETOPROFEN
     Indication: BACK PAIN
     Route: 065
     Dates: end: 20141212
  8. OMEPRAZOL [Concomitant]
     Active Substance: OMEPRAZOLE
     Indication: HYPERCHLORHYDRIA
     Route: 065
     Dates: end: 20141209
  9. INFLUENZA VACCINATION [Concomitant]
     Active Substance: INFLUENZA VIRUS VACCINE
     Route: 065
     Dates: start: 20141119
  10. PRIMASPAN [Concomitant]
     Indication: CARDIOVASCULAR EVENT PROPHYLAXIS
     Route: 065
     Dates: end: 20141212
  11. GAVISCON ORAL SUSPENSION (FINLAND) [Concomitant]
     Indication: HYPERCHLORHYDRIA
     Dosage: ML
     Route: 065
     Dates: end: 20141212
  12. ENALAPRIL [Concomitant]
     Active Substance: ENALAPRIL
     Indication: HYPERTENSION
     Route: 065
     Dates: end: 20141206
  13. OXYGEN. [Concomitant]
     Active Substance: OXYGEN
     Route: 065
     Dates: start: 201408
  14. BUVENTOL [Concomitant]
     Indication: IDIOPATHIC PULMONARY FIBROSIS
     Route: 065
     Dates: end: 20141206
  15. MELATONINE [Concomitant]
     Active Substance: MELATONIN
     Indication: SLEEP DISORDER
     Route: 065
     Dates: end: 20141210
  16. FURESIS [Concomitant]
     Active Substance: FUROSEMIDE
     Indication: HYPERTENSION
     Route: 065
     Dates: end: 20141212
  17. JANUVIA [Concomitant]
     Active Substance: SITAGLIPTIN PHOSPHATE
     Indication: TYPE 2 DIABETES MELLITUS
     Route: 065
     Dates: end: 20141206
  18. BUPRENORPHINE. [Concomitant]
     Active Substance: BUPRENORPHINE
     Indication: BACK PAIN
     Dosage: UNIT DOSE: 20 DOSAGE FORMS
     Route: 065
     Dates: end: 20141209
  19. COHEMIN DEPOT [Concomitant]
     Indication: VITAMIN B12 DEFICIENCY
     Route: 050
     Dates: end: 20141206
  20. TRIMETHOPRIM. [Concomitant]
     Active Substance: TRIMETHOPRIM
     Indication: URINARY TRACT INFECTION
     Route: 065
     Dates: start: 20140809, end: 20140815
  21. PEGORION [Concomitant]
     Indication: CONSTIPATION
     Route: 065
     Dates: end: 20141212
  22. MIRTAZAPIN [Concomitant]
     Active Substance: MIRTAZAPINE
     Indication: DEPRESSION
     Route: 065
     Dates: end: 20141206
  23. PIRFENIDONE [Suspect]
     Active Substance: PIRFENIDONE
     Dosage: 1602 MG
     Route: 048
     Dates: start: 20140731
  24. PANADOL FORTE [Concomitant]
     Active Substance: ACETAMINOPHEN\CAFFEINE
     Indication: BACK PAIN
     Route: 065
     Dates: end: 20141209
  25. DIFORMIN RETARD [Concomitant]
     Active Substance: METFORMIN HYDROCHLORIDE
     Indication: TYPE 2 DIABETES MELLITUS
     Route: 065
     Dates: end: 20141206

REACTIONS (2)
  - Dyspnoea [Recovered/Resolved]
  - Abdominal pain upper [Recovered/Resolved]

NARRATIVE: CASE EVENT DATE: 20140729
